FAERS Safety Report 13668137 (Version 1)
Quarter: 2017Q2

REPORT INFORMATION
  Report Type: Spontaneous
  Country: US (occurrence: US)
  Receive Date: 20170619
  Receipt Date: 20170619
  Transmission Date: 20170830
  Serious: Yes (Life-Threatening, Hospitalization)
  Sender: FDA-Public Use
  Company Number: None

PATIENT
  Age: 79 Year
  Sex: Female
  Weight: 65 kg

DRUGS (6)
  1. FOSAPREPITANT [Concomitant]
     Active Substance: FOSAPREPITANT
  2. DIPHENHYDRAMINE. [Concomitant]
     Active Substance: DIPHENHYDRAMINE
  3. PALONOSETRON [Concomitant]
     Active Substance: PALONOSETRON
  4. PACLITAXEL. [Suspect]
     Active Substance: PACLITAXEL
     Route: 041
  5. FAMOTIDINE. [Concomitant]
     Active Substance: FAMOTIDINE
  6. DEXAMETHASONE. [Concomitant]
     Active Substance: DEXAMETHASONE

REACTIONS (1)
  - Anaphylactic reaction [None]

NARRATIVE: CASE EVENT DATE: 20170522
